FAERS Safety Report 7628147-7 (Version None)
Quarter: 2011Q3

REPORT INFORMATION
  Report Type: 
  Country: None (occurrence: None)
  Receive Date: 20110720
  Receipt Date: 20110720
  Transmission Date: 20111222
  Serious: No
  Sender: FDA-Public Use
  Company Number: None

PATIENT
  Age: 79 Year
  Sex: Female
  Weight: 53.5244 kg

DRUGS (1)
  1. RECLAST [Suspect]
     Indication: OSTEOPOROSIS
     Dosage: 5MG X 1 IV
     Route: 042
     Dates: start: 20110714

REACTIONS (7)
  - FEELING ABNORMAL [None]
  - CHILLS [None]
  - INFLUENZA LIKE ILLNESS [None]
  - DECREASED APPETITE [None]
  - RESTLESSNESS [None]
  - MALAISE [None]
  - VOMITING [None]
